FAERS Safety Report 5093900-3 (Version None)
Quarter: 2006Q3

REPORT INFORMATION
  Report Type: 
  Country: None (occurrence: None)
  Receive Date: 20060829
  Receipt Date: 20060829
  Transmission Date: 20061208
  Serious: Yes (Death, Hospitalization)
  Sender: FDA-Public Use
  Company Number: None

PATIENT
  Age: 19 Year
  Sex: Male
  Weight: 53.5 kg

DRUGS (4)
  1. KETEK [Suspect]
     Indication: PNEUMONIA
     Dates: start: 20060301
  2. AZITHROMYCIN [Suspect]
     Indication: BRONCHITIS
     Dosage: 500MX X 1DAY; 250MG X 4
     Dates: start: 20060605, end: 20060609
  3. LANSOPRAZOLE [Concomitant]
  4. ETODOLAC [Concomitant]

REACTIONS (13)
  - ABDOMINAL PAIN UPPER [None]
  - DYSPNOEA [None]
  - ELECTROMECHANICAL DISSOCIATION [None]
  - FATIGUE [None]
  - GENERAL PHYSICAL HEALTH DETERIORATION [None]
  - HEPATIC FAILURE [None]
  - NAUSEA [None]
  - OEDEMA PERIPHERAL [None]
  - PERICARDIAL EFFUSION [None]
  - PLEURAL EFFUSION [None]
  - RENAL FAILURE ACUTE [None]
  - VENTRICULAR FIBRILLATION [None]
  - VOMITING [None]
